FAERS Safety Report 15709607 (Version 1)
Quarter: 2018Q4

REPORT INFORMATION
  Report Type: Spontaneous
  Country: US (occurrence: US)
  Receive Date: 20181211
  Receipt Date: 20181211
  Transmission Date: 20190205
  Serious: No
  Sender: FDA-Public Use
  Company Number: US-VIFOR (INTERNATIONAL) INC.-VIT-2018-11845

PATIENT
  Age: 80 Year
  Sex: Male

DRUGS (10)
  1. MIRALAX [Concomitant]
     Active Substance: POLYETHYLENE GLYCOL 3350
  2. ALLOPURINOL. [Concomitant]
     Active Substance: ALLOPURINOL
  3. VELTASSA [Suspect]
     Active Substance: PATIROMER
     Indication: HYPERKALAEMIA
     Route: 048
     Dates: start: 20181109
  4. VITAMIN D3 [Concomitant]
     Active Substance: CHOLECALCIFEROL
  5. LEVOTHYROXINE SODIUM. [Concomitant]
     Active Substance: LEVOTHYROXINE SODIUM
  6. CETIRIZINE HCL [Concomitant]
     Active Substance: CETIRIZINE HYDROCHLORIDE
  7. CARVEDILOL. [Concomitant]
     Active Substance: CARVEDILOL
  8. DEXAMETHASONE. [Concomitant]
     Active Substance: DEXAMETHASONE
  9. TOPROL XL [Concomitant]
     Active Substance: METOPROLOL SUCCINATE
  10. OMEPRAZOLE. [Concomitant]
     Active Substance: OMEPRAZOLE

REACTIONS (3)
  - Abdominal pain upper [Not Recovered/Not Resolved]
  - Product dose omission [Unknown]
  - Constipation [Not Recovered/Not Resolved]

NARRATIVE: CASE EVENT DATE: 201811
